FAERS Safety Report 8387208-8 (Version None)
Quarter: 2012Q2

REPORT INFORMATION
  Report Type: 
  Country: None (occurrence: None)
  Receive Date: 20120525
  Receipt Date: 20120521
  Transmission Date: 20120825
  Serious: Yes (Other)
  Sender: FDA-Public Use
  Company Number: US-PFIZER INC-2012123009

PATIENT
  Sex: Male
  Weight: 90.7 kg

DRUGS (2)
  1. LATANOPROST [Suspect]
     Indication: OPEN ANGLE GLAUCOMA
     Dosage: ONE DROP IN EACH EYE DAILY IN EVENING
     Route: 031
  2. TIMOLOL MALEATE [Suspect]
     Dosage: ONE DROP DAILY IN LEFT EYE IN MORNING
     Route: 031

REACTIONS (1)
  - INTRAOCULAR PRESSURE INCREASED [None]
